FAERS Safety Report 9710300 (Version 1)
Quarter: 2013Q4

REPORT INFORMATION
  Report Type: Spontaneous
  Country: US (occurrence: US)
  Receive Date: 20131126
  Receipt Date: 20131126
  Transmission Date: 20140711
  Serious: No
  Sender: FDA-Public Use
  Company Number: US-BRISTOL-MYERS SQUIBB COMPANY-18772608

PATIENT
  Age: 57 Year
  Sex: Male
  Weight: 132.88 kg

DRUGS (3)
  1. BYETTA [Suspect]
  2. METFORMIN HCL [Suspect]
  3. JANUVIA [Concomitant]
     Dates: start: 20130228

REACTIONS (4)
  - Nausea [Unknown]
  - Paraesthesia [Unknown]
  - Hyperhidrosis [Unknown]
  - Blood glucose increased [Recovering/Resolving]
